FAERS Safety Report 22518798 (Version 1)
Quarter: 2023Q2

REPORT INFORMATION
  Report Type: Spontaneous
  Country: BR (occurrence: BR)
  Receive Date: 20230605
  Receipt Date: 20230605
  Transmission Date: 20230721
  Serious: Yes (Other)
  Sender: FDA-Public Use
  Company Number: BR-TAKEDA-2021TUS017714

PATIENT

DRUGS (1)
  1. LISDEXAMFETAMINE DIMESYLATE [Suspect]
     Active Substance: LISDEXAMFETAMINE DIMESYLATE
     Indication: Product used for unknown indication
     Dosage: UNK
     Route: 065

REACTIONS (14)
  - Loss of consciousness [Unknown]
  - Labyrinthitis [Unknown]
  - Memory impairment [Unknown]
  - Snoring [Unknown]
  - Pain [Unknown]
  - Obsessive-compulsive disorder [Unknown]
  - Language disorder [Unknown]
  - Communication disorder [Unknown]
  - Feeling abnormal [Unknown]
  - Anxiety [Unknown]
  - Somnolence [Unknown]
  - Insomnia [Unknown]
  - Product use issue [Unknown]
  - Inappropriate schedule of product administration [Unknown]
